FAERS Safety Report 16419250 (Version 1)
Quarter: 2019Q2

REPORT INFORMATION
  Report Type: Spontaneous
  Country: IT (occurrence: IT)
  Receive Date: 20190612
  Receipt Date: 20190612
  Transmission Date: 20190711
  Serious: Yes (Other)
  Sender: FDA-Public Use
  Company Number: IT-ACCORD-132136

PATIENT
  Age: 68 Year
  Sex: Male

DRUGS (3)
  1. EZETIMIBE. [Suspect]
     Active Substance: EZETIMIBE
     Indication: TYPE IIA HYPERLIPIDAEMIA
  2. SIMVASTATIN. [Suspect]
     Active Substance: SIMVASTATIN
     Indication: TYPE IIA HYPERLIPIDAEMIA
  3. EVOLOCUMAB [Suspect]
     Active Substance: EVOLOCUMAB
     Indication: PRODUCT USED FOR UNKNOWN INDICATION
     Route: 058

REACTIONS (2)
  - Hepatocellular injury [Recovering/Resolving]
  - Autoimmune hepatitis [Recovering/Resolving]

NARRATIVE: CASE EVENT DATE: 20181101
